FAERS Safety Report 10221427 (Version 1)
Quarter: 2014Q2

REPORT INFORMATION
  Report Type: Spontaneous
  Country: US (occurrence: None)
  Receive Date: 20140605
  Receipt Date: 20140605
  Transmission Date: 20141212
  Serious: Yes (Life-Threatening, Other)
  Sender: FDA-Public Use
  Company Number: None

PATIENT
  Age: 59 Year
  Sex: Male
  Weight: 91.63 kg

DRUGS (1)
  1. JANUVIA (SITAGLIPTIN) TABLETS [Suspect]
     Indication: DIABETES MELLITUS MANAGEMENT
     Dosage: 100 MG      1 TAB PER DY.
     Dates: start: 201403, end: 201405

REACTIONS (4)
  - Vomiting [None]
  - Urticaria [None]
  - Blister [None]
  - Swelling face [None]
